FAERS Safety Report 21031750 (Version 1)
Quarter: 2022Q3

REPORT INFORMATION
  Report Type: Spontaneous
  Country: US (occurrence: None)
  Receive Date: 20220701
  Receipt Date: 20220701
  Transmission Date: 20221027
  Serious: No
  Sender: FDA-Public Use
  Company Number: US-ROCHE-2949922

PATIENT
  Age: 66 Year
  Sex: Female

DRUGS (1)
  1. ACTEMRA [Suspect]
     Active Substance: TOCILIZUMAB
     Indication: Product used for unknown indication
     Dosage: 400MG/20ML
     Route: 042
     Dates: start: 202106

REACTIONS (7)
  - Diarrhoea [Unknown]
  - Nausea [Unknown]
  - Cold sweat [Unknown]
  - Chills [Unknown]
  - Dysphagia [Unknown]
  - Throat tightness [Unknown]
  - Eye disorder [Unknown]

NARRATIVE: CASE EVENT DATE: 20211003
